FAERS Safety Report 13833050 (Version 2)
Quarter: 2017Q3

REPORT INFORMATION
  Report Type: Spontaneous
  Country: US (occurrence: US)
  Receive Date: 20170804
  Receipt Date: 20170913
  Transmission Date: 20171127
  Serious: No
  Sender: FDA-Public Use
  Company Number: US-PFIZER INC-2017334979

PATIENT
  Age: 59 Year
  Sex: Female

DRUGS (2)
  1. GENOTROPIN [Suspect]
     Active Substance: SOMATROPIN
     Indication: HYPOTHALAMO-PITUITARY DISORDER
  2. GENOTROPIN [Suspect]
     Active Substance: SOMATROPIN
     Indication: HYPERPITUITARISM
     Dosage: 0.6 MG, DAILY
     Route: 058
     Dates: start: 201605

REACTIONS (2)
  - Fatigue [Unknown]
  - Drug dose omission [Unknown]
